FAERS Safety Report 12621425 (Version 2)
Quarter: 2016Q3

REPORT INFORMATION
  Report Type: Spontaneous
  Country: GB (occurrence: GB)
  Receive Date: 20160804
  Receipt Date: 20160808
  Transmission Date: 20161109
  Serious: Yes (Other)
  Sender: FDA-Public Use
  Company Number: GB-009507513-1608GBR001434

PATIENT
  Age: 69 Year
  Sex: Male
  Weight: 91.16 kg

DRUGS (1)
  1. NASONEX [Suspect]
     Active Substance: MOMETASONE FUROATE
     Indication: NASAL DISORDER
     Dosage: 1 SPRAY PER NOSTRIL
     Route: 045
     Dates: start: 20160722, end: 20160724

REACTIONS (3)
  - Hypopnoea [Recovering/Resolving]
  - Pulmonary oedema [Recovering/Resolving]
  - Dyspnoea [Unknown]

NARRATIVE: CASE EVENT DATE: 20160722
